FAERS Safety Report 24665605 (Version 1)
Quarter: 2024Q4

REPORT INFORMATION
  Report Type: Spontaneous
  Country: CN (occurrence: CN)
  Receive Date: 20241126
  Receipt Date: 20241126
  Transmission Date: 20250115
  Serious: Yes (Other)
  Sender: MERCK
  Company Number: CN-009507513-2411CHN009333

PATIENT
  Age: 73 Year
  Sex: Female
  Weight: 44 kg

DRUGS (4)
  1. JANUMET [Suspect]
     Active Substance: METFORMIN HYDROCHLORIDE\SITAGLIPTIN PHOSPHATE
     Indication: Diabetes mellitus
     Dosage: 1 TABLET, BID
     Route: 048
     Dates: start: 20241113, end: 20241117
  2. SAXAGLIPTIN [Concomitant]
     Active Substance: SAXAGLIPTIN
     Indication: Diabetes mellitus
     Dosage: 5 MG, BID (ALSO REPORTED AS QD, CONFLICT INFORMATION)
     Route: 048
     Dates: start: 20241030, end: 20241113
  3. REPAGLINIDE [Concomitant]
     Active Substance: DULOXETINE HYDROCHLORIDE\REPAGLINIDE\TICAGRELOR
     Indication: Diabetes mellitus
     Dosage: 1 MG, TID
     Route: 048
     Dates: start: 20241030, end: 20241113
  4. DABIGATRAN ETEXILATE [Concomitant]
     Active Substance: DABIGATRAN ETEXILATE
     Indication: Atrial fibrillation
     Dosage: 110 MG, BID (START DATE ALSO REPORTED AS 04-NOV-2021, CONFLICTING INFORMATION)
     Route: 048
     Dates: start: 20220613, end: 20241118

REACTIONS (5)
  - Ophthalmoplegia [Unknown]
  - Asthenia [Recovering/Resolving]
  - Somnolence [Recovering/Resolving]
  - Hyperhidrosis [Recovering/Resolving]
  - Blood glucose abnormal [Unknown]

NARRATIVE: CASE EVENT DATE: 20241101
